FAERS Safety Report 19997612 (Version 4)
Quarter: 2022Q1

REPORT INFORMATION
  Report Type: Spontaneous
  Country: GB (occurrence: GB)
  Receive Date: 20211026
  Receipt Date: 20220112
  Transmission Date: 20220424
  Serious: Yes (Life-Threatening, Hospitalization)
  Sender: FDA-Public Use
  Company Number: GB-GLOBAL BLOOD THERAPEUTICS INC-GB-GBT-21-03794

PATIENT
  Age: 23 Year
  Sex: Male
  Weight: 63 kg

DRUGS (7)
  1. OXBRYTA [Suspect]
     Active Substance: VOXELOTOR
     Indication: Sickle cell disease
     Route: 048
     Dates: start: 20210920, end: 20211009
  2. OXBRYTA [Suspect]
     Active Substance: VOXELOTOR
     Route: 048
     Dates: start: 20210910
  3. FOLIC ACID [Concomitant]
     Active Substance: FOLIC ACID
     Indication: Sickle cell disease
     Dosage: NOT PROVIDED
  4. HYDROXYUREA [Concomitant]
     Active Substance: HYDROXYUREA
     Indication: Sickle cell disease
     Route: 048
  5. CHOLECALCIFEROL [Concomitant]
     Active Substance: CHOLECALCIFEROL
     Indication: Product used for unknown indication
  6. OMEPRAZOLE [Concomitant]
     Active Substance: OMEPRAZOLE
     Indication: Stress ulcer
  7. HUMAN RED BLOOD CELL [Concomitant]
     Active Substance: HUMAN RED BLOOD CELL
     Indication: Product used for unknown indication
     Dosage: 8 UNITS
     Dates: start: 20211009

REACTIONS (1)
  - Sickle cell anaemia with crisis [Recovered/Resolved]

NARRATIVE: CASE EVENT DATE: 20211009
